FAERS Safety Report 23278701 (Version 1)
Quarter: 2023Q4

REPORT INFORMATION
  Report Type: Report from Study
  Country: MX (occurrence: MX)
  Receive Date: 20231208
  Receipt Date: 20231208
  Transmission Date: 20240110
  Serious: Yes (Other)
  Sender: FDA-Public Use
  Company Number: MX-JNJFOC-20231141455

PATIENT
  Age: 52 Year
  Sex: Female
  Weight: 58 kg

DRUGS (1)
  1. SIMPONI [Suspect]
     Active Substance: GOLIMUMAB
     Indication: Axial spondyloarthritis
     Route: 058
     Dates: start: 20210701

REACTIONS (6)
  - Hypertension [Unknown]
  - Cystitis [Unknown]
  - Bronchitis [Unknown]
  - Tachycardia [Unknown]
  - Tooth infection [Unknown]
  - Tonsillitis [Unknown]

NARRATIVE: CASE EVENT DATE: 20231124
